FAERS Safety Report 24708452 (Version 1)
Quarter: 2024Q4

REPORT INFORMATION
  Report Type: Spontaneous
  Country: US (occurrence: US)
  Receive Date: 20241207
  Receipt Date: 20241207
  Transmission Date: 20250114
  Serious: No
  Sender: ABBVIE
  Company Number: US-ABBVIE-6031521

PATIENT
  Sex: Male

DRUGS (3)
  1. VRAYLAR [Suspect]
     Active Substance: CARIPRAZINE
     Indication: Schizophrenia
     Route: 065
  2. VRAYLAR [Suspect]
     Active Substance: CARIPRAZINE
     Indication: Schizophrenia
     Dosage: DRUG START DATE: OCT
     Route: 065
  3. LITHIUM [Suspect]
     Active Substance: LITHIUM
     Indication: Schizophrenia
     Route: 065

REACTIONS (4)
  - Thinking abnormal [Unknown]
  - Dyskinesia [Unknown]
  - Lethargy [Unknown]
  - Drug interaction [Unknown]
